FAERS Safety Report 6655482-1 (Version None)
Quarter: 2010Q1

REPORT INFORMATION
  Report Type: 
  Country: None (occurrence: None)
  Receive Date: 20100329
  Receipt Date: 20091218
  Transmission Date: 20100710
  Serious: Yes (Life-Threatening, Hospitalization)
  Sender: FDA-Public Use
  Company Number: FR-JNJFOC-20090607528

PATIENT
  Age: 71 Year
  Sex: Female

DRUGS (7)
  1. TAVANIC [Suspect]
     Indication: DRUG USE FOR UNKNOWN INDICATION
     Route: 048
  2. RISPERIDONE [Suspect]
     Indication: DRUG USE FOR UNKNOWN INDICATION
     Route: 048
  3. OMEPRAZOLE [Suspect]
     Indication: DRUG USE FOR UNKNOWN INDICATION
     Route: 048
  4. LECTIL [Suspect]
     Indication: DRUG USE FOR UNKNOWN INDICATION
     Route: 048
  5. LYRICA [Concomitant]
     Route: 065
  6. PRETERAX [Concomitant]
     Route: 065
  7. ^ANTIHISTAMINICS^ [Concomitant]
     Route: 065

REACTIONS (8)
  - BLOOD CREATINE INCREASED [None]
  - DRUG RASH WITH EOSINOPHILIA AND SYSTEMIC SYMPTOMS [None]
  - DYSPNOEA [None]
  - EOSINOPHILIA [None]
  - FACE OEDEMA [None]
  - HYPOTENSION [None]
  - PRODUCTIVE COUGH [None]
  - TOXIC SKIN ERUPTION [None]
